FAERS Safety Report 5676359-4 (Version None)
Quarter: 2008Q1

REPORT INFORMATION
  Report Type: 
  Country: None (occurrence: None)
  Receive Date: 20080321
  Receipt Date: 20080311
  Transmission Date: 20080703
  Serious: Yes (Other)
  Sender: FDA-Public Use
  Company Number: CH-PFIZER INC-2008022806

PATIENT
  Sex: Male
  Weight: 2.6 kg

DRUGS (2)
  1. XANAX [Suspect]
     Indication: DEPRESSION
     Route: 048
  2. PAROXETINE HCL [Suspect]
     Indication: DEPRESSION
     Route: 048

REACTIONS (3)
  - DRUG EXPOSURE DURING PREGNANCY [None]
  - INFANTILE APNOEIC ATTACK [None]
  - PREMATURE BABY [None]
